FAERS Safety Report 24575535 (Version 1)
Quarter: 2024Q4

REPORT INFORMATION
  Report Type: Spontaneous
  Country: US (occurrence: US)
  Receive Date: 20241104
  Receipt Date: 20241104
  Transmission Date: 20250114
  Serious: Yes (Hospitalization, Other)
  Sender: MARKSANS PHARMA LIMITED
  Company Number: US-MARKSANS PHARMA LIMITED-MPL202400078

PATIENT
  Sex: Male

DRUGS (4)
  1. GABAPENTIN [Interacting]
     Active Substance: GABAPENTIN
     Indication: Product used for unknown indication
     Dosage: UNK
     Route: 064
  2. ESCITALOPRAM [Interacting]
     Active Substance: ESCITALOPRAM OXALATE
     Indication: Product used for unknown indication
     Dosage: UNK
     Route: 064
  3. CLONAZEPAM [Interacting]
     Active Substance: CLONAZEPAM
     Indication: Product used for unknown indication
     Dosage: UNK
     Route: 064
  4. METHADONE [Suspect]
     Active Substance: METHADONE HYDROCHLORIDE
     Indication: Product used for unknown indication
     Dosage: UNK
     Route: 064

REACTIONS (10)
  - Hypertonia neonatal [Recovered/Resolved]
  - Infantile apnoea [Recovered/Resolved]
  - Hypotonia neonatal [Recovered/Resolved]
  - Foetal exposure during pregnancy [Unknown]
  - Poor sucking reflex [Recovered/Resolved]
  - Feeling jittery [Recovered/Resolved]
  - Infantile back arching [Recovered/Resolved]
  - Breath holding [Recovered/Resolved]
  - Tongue thrust [Recovered/Resolved]
  - Drug interaction [Unknown]
